FAERS Safety Report 11882173 (Version 3)
Quarter: 2016Q1

REPORT INFORMATION
  Report Type: Spontaneous
  Country: US (occurrence: US)
  Receive Date: 20151231
  Receipt Date: 20160320
  Transmission Date: 20160526
  Serious: Yes (Hospitalization, Other)
  Sender: FDA-Public Use
  Company Number: US-ELI_LILLY_AND_COMPANY-US201512007117

PATIENT
  Age: 56 Year
  Sex: Male
  Weight: 100.68 kg

DRUGS (8)
  1. CIALIS [Concomitant]
     Active Substance: TADALAFIL
  2. ANDROGEL [Suspect]
     Active Substance: TESTOSTERONE
     Indication: BLOOD TESTOSTERONE DECREASED
     Dosage: UNK, UNKNOWN
     Route: 065
     Dates: start: 20110913, end: 201111
  3. AXIRON [Suspect]
     Active Substance: TESTOSTERONE
     Indication: ANDROGEN REPLACEMENT THERAPY
     Dosage: UNK, UNKNOWN
     Route: 065
     Dates: start: 20130315, end: 201310
  4. ANDROGEL [Suspect]
     Active Substance: TESTOSTERONE
     Dosage: UNK, UNKNOWN
     Route: 065
     Dates: start: 20120730, end: 201304
  5. FAMOTIDINE. [Concomitant]
     Active Substance: FAMOTIDINE
  6. TESTIM [Suspect]
     Active Substance: TESTOSTERONE
     Indication: BLOOD TESTOSTERONE DECREASED
     Dosage: UNK, UNKNOWN
     Route: 065
     Dates: start: 20111111, end: 201207
  7. AXIRON [Suspect]
     Active Substance: TESTOSTERONE
     Indication: BLOOD TESTOSTERONE DECREASED
     Dosage: UNK, UNKNOWN
     Route: 065
     Dates: start: 20150105, end: 201601
  8. ASPIRIN                            /00002701/ [Concomitant]
     Active Substance: ASPIRIN

REACTIONS (10)
  - Arteriosclerosis coronary artery [Unknown]
  - Polycythaemia [Unknown]
  - Pain in extremity [Unknown]
  - Angina unstable [Unknown]
  - Diastolic dysfunction [Unknown]
  - Chest discomfort [Unknown]
  - Hyperhidrosis [Unknown]
  - Acute coronary syndrome [Not Recovered/Not Resolved]
  - Hypoaesthesia [Unknown]
  - General physical health deterioration [Not Recovered/Not Resolved]

NARRATIVE: CASE EVENT DATE: 20131223
